FAERS Safety Report 9763467 (Version 1)
Quarter: 2013Q4

REPORT INFORMATION
  Report Type: Spontaneous
  Country: US (occurrence: US)
  Receive Date: 20131216
  Receipt Date: 20131216
  Transmission Date: 20140711
  Serious: No
  Sender: FDA-Public Use
  Company Number: US-BIOGENIDEC-2013BI105805

PATIENT
  Sex: Female

DRUGS (13)
  1. TECFIDERA [Suspect]
     Indication: MULTIPLE SCLEROSIS
     Route: 048
     Dates: start: 20131013
  2. TECFIDERA [Suspect]
     Indication: MULTIPLE SCLEROSIS
     Route: 048
  3. L-CARNITINE [Concomitant]
  4. SOMA [Concomitant]
  5. ZOLOFT [Concomitant]
  6. VALIUM [Concomitant]
  7. HYDROCODONE-ACETAMINOPHEN [Concomitant]
  8. COENZYME [Concomitant]
  9. AMINO ACID [Concomitant]
  10. FISH OIL [Concomitant]
  11. PRIMROSE [Concomitant]
  12. MILK THISTLE [Concomitant]
  13. LYRICA [Concomitant]

REACTIONS (4)
  - Gastric disorder [Unknown]
  - Depression [Unknown]
  - Flushing [Unknown]
  - Pruritus [Unknown]
